FAERS Safety Report 11059556 (Version 3)
Quarter: 2016Q2

REPORT INFORMATION
  Report Type: Spontaneous
  Country: GR (occurrence: GR)
  Receive Date: 20150423
  Receipt Date: 20160427
  Transmission Date: 20160815
  Serious: Yes (Hospitalization, Other)
  Sender: FDA-Public Use
  Company Number: GR-BRISTOL-MYERS SQUIBB COMPANY-BMS-2015-026511

PATIENT
  Age: 76 Year
  Sex: Male

DRUGS (3)
  1. VILDAGLIPTIN [Suspect]
     Active Substance: VILDAGLIPTIN
     Indication: TYPE 2 DIABETES MELLITUS
     Dosage: 50 MG, QD
     Route: 065
  2. QUINAPRIL. [Concomitant]
     Active Substance: QUINAPRIL
     Indication: HYPERTENSION
     Route: 065
  3. METFORMIN HYDROCHLORIDE. [Suspect]
     Active Substance: METFORMIN HYDROCHLORIDE
     Indication: TYPE 2 DIABETES MELLITUS
     Dosage: 850 MG, QD
     Route: 048

REACTIONS (7)
  - Leukoencephalopathy [Recovered/Resolved]
  - Vitamin B12 deficiency [Recovered/Resolved]
  - Chronic kidney disease [Recovered/Resolved]
  - Hyperhomocysteinaemia [Recovered/Resolved]
  - Helicobacter infection [Recovered/Resolved]
  - Thrombophlebitis superficial [Recovered/Resolved]
  - Chronic gastritis [Recovered/Resolved]
